FAERS Safety Report 6711052-8 (Version None)
Quarter: 2010Q2

REPORT INFORMATION
  Report Type: 
  Country: None (occurrence: None)
  Receive Date: 20100505
  Receipt Date: 20100426
  Transmission Date: 20101027
  Serious: Yes (Other)
  Sender: FDA-Public Use
  Company Number: JP-JNJFOC-20100403091

PATIENT
  Age: 84 Year
  Sex: Female

DRUGS (4)
  1. ITRIZOLE [Suspect]
     Indication: ORAL CANDIDIASIS
     Route: 048
  2. ITRIZOLE [Suspect]
     Route: 048
  3. LOXOPROFEN SODIUM [Concomitant]
     Indication: DRUG USE FOR UNKNOWN INDICATION
     Route: 065
  4. MAGNESIUM  OXIDE [Concomitant]
     Indication: DRUG USE FOR UNKNOWN INDICATION
     Route: 048

REACTIONS (4)
  - DEMENTIA [None]
  - ERYTHEMA [None]
  - GLOSSODYNIA [None]
  - TONGUE DISORDER [None]
